FAERS Safety Report 7996860-8 (Version None)
Quarter: 2011Q4

REPORT INFORMATION
  Report Type: 
  Country: None (occurrence: None)
  Receive Date: 20111221
  Receipt Date: 20111213
  Transmission Date: 20120403
  Serious: Yes (Hospitalization)
  Sender: FDA-Public Use
  Company Number: US-UCBSA-047621

PATIENT
  Age: 27 Year
  Sex: Male

DRUGS (1)
  1. KEPPRA XR [Suspect]
     Dosage: 500 MG TABLETS

REACTIONS (1)
  - CENTRAL NERVOUS SYSTEM INFECTION [None]
